FAERS Safety Report 21382440 (Version 2)
Quarter: 2022Q3

REPORT INFORMATION
  Report Type: Other
  Country: JP (occurrence: JP)
  Receive Date: 20220927
  Receipt Date: 20220929
  Transmission Date: 20221026
  Serious: Yes (Life-Threatening)
  Sender: FDA-Public Use
  Company Number: JP-CHUGAI-2021031539

PATIENT
  Age: 88 Year
  Sex: Female
  Weight: 53 kg

DRUGS (8)
  1. POLATUZUMAB VEDOTIN [Suspect]
     Active Substance: POLATUZUMAB VEDOTIN
     Indication: Diffuse large B-cell lymphoma
     Dosage: 1.8 MILLIGRAM/KILOGRAM, ONCE/3WEEKS
     Route: 041
     Dates: start: 20211006, end: 20211117
  2. BENDAMUSTINE HYDROCHLORIDE [Suspect]
     Active Substance: BENDAMUSTINE HYDROCHLORIDE
     Indication: Diffuse large B-cell lymphoma
     Dosage: UNK, MOST RECENT DOSE 18/NOV/2021
     Route: 041
     Dates: start: 20211006
  3. RITUXIMAB [Suspect]
     Active Substance: RITUXIMAB
     Indication: Diffuse large B-cell lymphoma refractory
     Route: 041
     Dates: start: 20201216, end: 20211117
  4. RITUXIMAB [Suspect]
     Active Substance: RITUXIMAB
     Dosage: 1.8 MG/KG/
     Route: 041
     Dates: start: 20211006, end: 20211006
  5. RITUXIMAB [Suspect]
     Active Substance: RITUXIMAB
     Dosage: 1.8 MG/KG/
     Route: 041
     Dates: start: 20211027, end: 20211027
  6. RITUXIMAB [Suspect]
     Active Substance: RITUXIMAB
     Dosage: 1.8 MG/KG/
     Route: 041
     Dates: start: 20211117, end: 20211117
  7. RITUXIMAB [Suspect]
     Active Substance: RITUXIMAB
     Route: 041
     Dates: start: 20211006, end: 20211118
  8. RITUXIMAB [Concomitant]
     Active Substance: RITUXIMAB
     Indication: Diffuse large B-cell lymphoma
     Dosage: UNK
     Route: 041
     Dates: start: 20201216, end: 20211117

REACTIONS (5)
  - Decreased appetite [Not Recovered/Not Resolved]
  - Blood creatinine increased [Recovering/Resolving]
  - Fall [Unknown]
  - Depression [Not Recovered/Not Resolved]
  - Nausea [Not Recovered/Not Resolved]

NARRATIVE: CASE EVENT DATE: 20211116
